APPROVED DRUG PRODUCT: BORTEZOMIB
Active Ingredient: BORTEZOMIB
Strength: 3.5MG/3.5ML (1MG/ML)
Dosage Form/Route: SOLUTION;INTRAVENOUS
Application: N215331 | Product #001
Applicant: MAIA PHARMACEUTICALS INC
Approved: Jul 27, 2022 | RLD: Yes | RS: No | Type: DISCN

PATENTS:
Patent 11752164 | Expires: Sep 23, 2042
Patent 11752164 | Expires: Sep 23, 2042
Patent 11679119 | Expires: Sep 23, 2042
Patent 11679119 | Expires: Sep 23, 2042
Patent 12005069 | Expires: Sep 23, 2042